FAERS Safety Report 23904343 (Version 2)
Quarter: 2024Q4

REPORT INFORMATION
  Report Type: Spontaneous
  Country: NL (occurrence: NL)
  Receive Date: 20240527
  Receipt Date: 20241031
  Transmission Date: 20250115
  Serious: Yes (Death, Hospitalization, Other)
  Sender: PFIZER
  Company Number: NL-ROCHE-3563129

PATIENT
  Age: 55 Year
  Sex: Male

DRUGS (3)
  1. TRASTUZUMAB [Suspect]
     Active Substance: TRASTUZUMAB
     Indication: Gastric cancer
     Dosage: UNK
  2. CAPECITABINE [Suspect]
     Active Substance: CAPECITABINE
     Indication: Gastric cancer
     Dosage: DOSE OF CAPECITABINE WAS REDUCED TO 50% (500 MG/M2 TWICE DAILY).
     Route: 065
  3. OXALIPLATIN [Suspect]
     Active Substance: OXALIPLATIN
     Indication: Gastric cancer
     Dosage: UNK
     Route: 065

REACTIONS (9)
  - Toxicity to various agents [Fatal]
  - Leukoencephalopathy [Unknown]
  - Diarrhoea [Unknown]
  - Mucosal inflammation [Recovered/Resolved]
  - Altered state of consciousness [Recovering/Resolving]
  - Cognitive disorder [Recovering/Resolving]
  - Neutropenic colitis [Recovered/Resolved]
  - Pancytopenia [Recovered/Resolved]
  - Renal vein thrombosis [Unknown]
